FAERS Safety Report 8146640-8 (Version None)
Quarter: 2012Q1

REPORT INFORMATION
  Report Type: 
  Country: None (occurrence: None)
  Receive Date: 20120217
  Receipt Date: 20120214
  Transmission Date: 20120608
  Serious: Yes (Death, Hospitalization)
  Sender: FDA-Public Use
  Company Number: US-GILEAD-2012-0050320

PATIENT
  Sex: Male

DRUGS (4)
  1. REVATIO [Concomitant]
  2. LETAIRIS [Suspect]
     Indication: PULMONARY HYPERTENSION
  3. LETAIRIS [Suspect]
     Indication: PORTOPULMONARY HYPERTENSION
  4. REMODULIN [Concomitant]

REACTIONS (2)
  - PNEUMONIA [None]
  - PULMONARY ARTERIAL HYPERTENSION [None]
